FAERS Safety Report 19007344 (Version 1)
Quarter: 2021Q1

REPORT INFORMATION
  Report Type: Spontaneous
  Country: US (occurrence: US)
  Receive Date: 20210315
  Receipt Date: 20210315
  Transmission Date: 20210420
  Serious: No
  Sender: FDA-Public Use
  Company Number: None

PATIENT
  Age: 55 Year
  Sex: Female
  Weight: 56.66 kg

DRUGS (11)
  1. MIRABEGRON [Concomitant]
     Active Substance: MIRABEGRON
  2. PROCHLORPERAZINE MALEATE. [Concomitant]
     Active Substance: PROCHLORPERAZINE MALEATE
  3. LACTULOSE. [Concomitant]
     Active Substance: LACTULOSE
  4. MARINOL [Concomitant]
     Active Substance: DRONABINOL
  5. FENTANYL. [Concomitant]
     Active Substance: FENTANYL
  6. NORCO [Concomitant]
     Active Substance: ACETAMINOPHEN\HYDROCODONE BITARTRATE
  7. VOTRIENT [Suspect]
     Active Substance: PAZOPANIB HYDROCHLORIDE
     Indication: SOFT TISSUE SARCOMA
     Route: 048
     Dates: start: 20210126, end: 20210315
  8. COLACE [Concomitant]
     Active Substance: DOCUSATE SODIUM
  9. SUCRALFATE. [Concomitant]
     Active Substance: SUCRALFATE
  10. VENLAFAXINE HCL [Concomitant]
     Active Substance: VENLAFAXINE HYDROCHLORIDE
  11. ACETAMINOPHEN. [Concomitant]
     Active Substance: ACETAMINOPHEN

REACTIONS (1)
  - Hospice care [None]

NARRATIVE: CASE EVENT DATE: 20210315
